FAERS Safety Report 6998394-6 (Version None)
Quarter: 2010Q3

REPORT INFORMATION
  Report Type: 
  Country: None (occurrence: None)
  Receive Date: 20100920
  Receipt Date: 20100908
  Transmission Date: 20110219
  Serious: Yes (Other)
  Sender: FDA-Public Use
  Company Number: PHHY2010US60157

PATIENT
  Sex: Male

DRUGS (13)
  1. GENTEAL PM LUBRICANT EYE OINTMENT [Suspect]
     Dosage: UNK
  2. GABAPENTIN [Concomitant]
     Dosage: UNK
  3. METOPROLOL [Concomitant]
     Dosage: UNK
  4. FUROSEMIDE [Concomitant]
     Dosage: UNK
  5. GLEEVEC [Concomitant]
     Dosage: UNK
  6. MULTI-VITAMINS [Concomitant]
     Dosage: UNK
  7. CALCIUM WITH VITAMIN D [Concomitant]
     Dosage: UNK
  8. OMEPRAZOLE [Concomitant]
     Dosage: UNK
  9. DOXAZOSIN MESYLATE [Concomitant]
     Dosage: UNK
  10. PROVENTIL GENTLEHALER [Concomitant]
     Dosage: UNK
  11. VITAMIN E [Concomitant]
     Dosage: UNK
  12. FISH OIL [Concomitant]
     Dosage: UNK
  13. BETACAROTENE [Concomitant]
     Dosage: UNK

REACTIONS (4)
  - CHOKING [None]
  - EYE DISCHARGE [None]
  - HYPERSENSITIVITY [None]
  - LUNG DISORDER [None]
